FAERS Safety Report 4600583-2 (Version None)
Quarter: 2005Q1

REPORT INFORMATION
  Report Type: 
  Country: None (occurrence: None)
  Receive Date: 20050304
  Receipt Date: 20050221
  Transmission Date: 20050727
  Serious: Yes (Hospitalization, Other)
  Sender: FDA-Public Use
  Company Number: 2005033672

PATIENT
  Age: 75 Year
  Sex: Female

DRUGS (12)
  1. FELDENE [Suspect]
     Indication: BACK PAIN
     Dosage: INTRAMUSCULAR
     Route: 030
     Dates: start: 20041202, end: 20041206
  2. CAPOZIDE 25/15 [Suspect]
     Indication: ESSENTIAL HYPERTENSION
     Dosage: 0.5 TABLET (1 IN 1 D), ORAL
     Route: 048
     Dates: end: 20041206
  3. FLUOXETINE HYDROCHLORIDE [Suspect]
     Indication: DYSTHYMIC DISORDER
     Dosage: 20 MG (1 IN 1 D), ORAL
     Route: 048
     Dates: end: 20041206
  4. BISOPROLOL FUMARATE [Suspect]
     Indication: ESSENTIAL HYPERTENSION
     Dates: end: 20041206
  5. CLOPIDOGREL BISULFATE [Suspect]
     Indication: PROPHYLAXIS
     Dosage: 1 DOSE FORM (1 IN 1 D), ORAL
     Route: 048
     Dates: end: 20041206
  6. GLICLAZIDE (GLICLAZIDE) [Suspect]
     Indication: DIABETES MELLITUS
     Dosage: ORAL
     Route: 048
     Dates: end: 20041206
  7. GINKGO BILOBA EXTRACT (GINKGO BILOBA  EXTRACT) [Concomitant]
  8. SIMVASTATIN [Concomitant]
  9. ZOLPIDEM TARTRATE [Concomitant]
  10. BROMAZEPAM (BROMAZEPAM) [Concomitant]
  11. PIASCLEDINE (PERSEAE OLEUM, SOYA OIL) [Concomitant]
  12. ACETAMINOPHEN [Concomitant]

REACTIONS (2)
  - HYPOKALAEMIA [None]
  - HYPONATRAEMIA [None]
